FAERS Safety Report 16797362 (Version 3)
Quarter: 2019Q4

REPORT INFORMATION
  Report Type: Report from Study
  Country: US (occurrence: US)
  Receive Date: 20190912
  Receipt Date: 20191203
  Transmission Date: 20200122
  Serious: Yes (Other)
  Sender: FDA-Public Use
  Company Number: US-ROCHE-2405723

PATIENT
  Sex: Female
  Weight: 88.53 kg

DRUGS (1)
  1. OCREVUS [Suspect]
     Active Substance: OCRELIZUMAB
     Indication: PRIMARY PROGRESSIVE MULTIPLE SCLEROSIS
     Dosage: NEXT DATES OF ADMINISTRATION: /FEB/2019, 31/JAN/2020
     Route: 065
     Dates: start: 20180815

REACTIONS (1)
  - Renal mass [Unknown]
